FAERS Safety Report 7820750-4 (Version None)
Quarter: 2011Q4

REPORT INFORMATION
  Report Type: 
  Country: None (occurrence: None)
  Receive Date: 20111018
  Receipt Date: 20111012
  Transmission Date: 20120403
  Serious: Yes (Hospitalization)
  Sender: FDA-Public Use
  Company Number: FR-BRISTOL-MYERS SQUIBB COMPANY-16160939

PATIENT
  Age: 62 Year
  Sex: Female

DRUGS (3)
  1. TRUVADA [Suspect]
     Indication: HIV INFECTION
     Dosage: 13DEC2010 TO 13MAR2011(91D) RESTARTED ON 18APR2011
     Route: 048
     Dates: start: 20101213, end: 20110313
  2. REYATAZ [Suspect]
     Indication: HIV INFECTION
     Dosage: 13DEC2010 TO 13MAR2011(91D) RESTARTED ON 18APR2011
     Route: 048
     Dates: start: 20101213, end: 20110313
  3. NORVIR [Concomitant]
     Indication: HIV INFECTION
     Dosage: INTERRUPTED ON 13-MAR-2011; RESTARTED ON 18-APR-2011.
     Route: 048

REACTIONS (2)
  - RENAL TUBULAR DISORDER [None]
  - RENAL FAILURE ACUTE [None]
